FAERS Safety Report 15265906 (Version 3)
Quarter: 2018Q4

REPORT INFORMATION
  Report Type: Spontaneous
  Country: AT (occurrence: AT)
  Receive Date: 20180810
  Receipt Date: 20181113
  Transmission Date: 20190204
  Serious: Yes (Hospitalization, Other)
  Sender: FDA-Public Use
  Company Number: AT-PFIZER INC-2018317833

PATIENT
  Age: 68 Year
  Sex: Female
  Weight: 60 kg

DRUGS (18)
  1. SPIRONO [Concomitant]
     Dosage: 25 MG, 1X/DAY
     Route: 065
     Dates: start: 20171201
  2. OLEOVIT [Concomitant]
     Dosage: 28 GTT, WEEKLY
  3. DOXAZOSIN MESILATE [Suspect]
     Active Substance: DOXAZOSIN MESYLATE
     Dosage: 12 MG, 1X/DAY
     Dates: end: 20171115
  4. DOXAZOSIN MESILATE [Suspect]
     Active Substance: DOXAZOSIN MESYLATE
     Dosage: 8 MG, UNK (MONDAY TO SATURDAY)
     Dates: start: 20171116
  5. FERRETAB [FERROUS FUMARATE] [Concomitant]
     Dosage: 1 DF, 1X/DAY
     Dates: start: 20171113, end: 20171114
  6. ACETOLYT [CALCIUM CITRATE;SODIUM CITRATE ACID] [Concomitant]
     Dosage: 1 DF, UNK
  7. METOPROLOL. [Concomitant]
     Active Substance: METOPROLOL
     Dosage: 95 MG, 1X/DAY (MONDAY - SATURDAY)
  8. ALNA RETARD [Concomitant]
     Active Substance: TAMSULOSIN HYDROCHLORIDE
     Dosage: 0.4 MG, UNK
     Dates: end: 20171113
  9. MYOCHOLINE [Suspect]
     Active Substance: BETHANECHOL CHLORIDE
     Dosage: 75 MG, UNK
     Dates: end: 20171113
  10. PANTOPRAZOL [PANTOPRAZOLE SODIUM SESQUIHYDRATE] [Concomitant]
     Dosage: 80 MG, UNK
     Dates: start: 20171114
  11. MYOCHOLINE [Suspect]
     Active Substance: BETHANECHOL CHLORIDE
     Dosage: 75 MG, 1X/DAY
     Route: 065
     Dates: start: 20171125
  12. SPIRONO [Concomitant]
     Dosage: 25 MG, UNK
     Dates: end: 20171113
  13. EBRANTIL [URAPIDIL] [Concomitant]
     Dosage: 120 MG, 1X/DAY
     Route: 065
     Dates: start: 20171113, end: 20171117
  14. ABILIFY [Suspect]
     Active Substance: ARIPIPRAZOLE
     Dosage: 15 MG, 1X/DAY
     Dates: start: 201509, end: 20171113
  15. ENALAPRIL/LERCANIDIPIN KRKA [Concomitant]
     Dosage: 2 DF, 1X/DAY  (20/10)
     Route: 065
     Dates: end: 20171117
  16. PANTOPRAZOL [PANTOPRAZOLE SODIUM SESQUIHYDRATE] [Concomitant]
     Dosage: 40 MG, 1X/DAY
     Route: 065
     Dates: end: 20171113
  17. ACETYLSALICYLIC ACID [Concomitant]
     Active Substance: ASPIRIN
     Dosage: 100 MG, UNK
  18. ALNA RETARD [Concomitant]
     Active Substance: TAMSULOSIN HYDROCHLORIDE
     Dosage: 0.4 MG, UNK
     Dates: start: 20171118

REACTIONS (10)
  - Chronic kidney disease [Unknown]
  - Proteinuria [Unknown]
  - Hypothermia [Recovered/Resolved]
  - Dyspnoea [Unknown]
  - Diabetic nephropathy [Unknown]
  - Oliguria [Unknown]
  - Hypertensive crisis [Unknown]
  - General physical health deterioration [Unknown]
  - Hypertensive nephropathy [Unknown]
  - Pleural effusion [Unknown]

NARRATIVE: CASE EVENT DATE: 20171113
